FAERS Safety Report 7769616-9 (Version None)
Quarter: 2011Q3

REPORT INFORMATION
  Report Type: 
  Country: None (occurrence: None)
  Receive Date: 20110922
  Receipt Date: 20110718
  Transmission Date: 20111222
  Serious: No
  Sender: FDA-Public Use
  Company Number: US-ASTRAZENECA-2011SE42794

PATIENT
  Age: 52 Year
  Sex: Female
  Weight: 63.5 kg

DRUGS (4)
  1. ESTRODO [Concomitant]
     Indication: HORMONE REPLACEMENT THERAPY
  2. CLARITIN [Concomitant]
     Indication: MULTIPLE ALLERGIES
  3. SEROQUEL XR [Suspect]
     Indication: BIPOLAR DISORDER
     Route: 048
  4. LITHIUM CARBONATE [Concomitant]
     Indication: BIPOLAR I DISORDER

REACTIONS (3)
  - DRUG DOSE OMISSION [None]
  - EMOTIONAL DISORDER [None]
  - MENTAL DISORDER [None]
